FAERS Safety Report 6436547-6 (Version None)
Quarter: 2009Q4

REPORT INFORMATION
  Report Type: 
  Country: None (occurrence: None)
  Receive Date: 20091111
  Receipt Date: 20091102
  Transmission Date: 20100525
  Serious: Yes (Other)
  Sender: FDA-Public Use
  Company Number: ES-TYCO HEALTHCARE/MALLINCKRODT-T200901981

PATIENT
  Age: 4 Year
  Sex: Female

DRUGS (3)
  1. TECHNESCAN [Suspect]
     Indication: BONE SCAN
     Dosage: UNK
     Route: 042
     Dates: start: 20081204, end: 20081204
  2. ULTRA-TECHNEKOW FM [Suspect]
     Indication: BONE SCAN
     Dosage: 6 MCI, SINGLE
     Route: 042
     Dates: start: 20081204, end: 20081204
  3. IBUPROFEN [Suspect]

REACTIONS (2)
  - BONE SCAN ABNORMAL [None]
  - DRUG INTERACTION [None]
